FAERS Safety Report 12574953 (Version 6)
Quarter: 2020Q2

REPORT INFORMATION
  Report Type: Spontaneous
  Country: US (occurrence: US)
  Receive Date: 20160720
  Receipt Date: 20200616
  Transmission Date: 20200713
  Serious: No
  Sender: FDA-Public Use
  Company Number: US-ASTELLAS-2015US039127

PATIENT
  Sex: Female

DRUGS (2)
  1. VESICARE [Suspect]
     Active Substance: SOLIFENACIN SUCCINATE
     Indication: ENTEROVESICAL FISTULA
     Route: 048
     Dates: start: 20130712
  2. VESICARE [Suspect]
     Active Substance: SOLIFENACIN SUCCINATE
     Indication: INCONTINENCE
     Route: 048
     Dates: start: 2016

REACTIONS (3)
  - Dizziness [Unknown]
  - Drug ineffective for unapproved indication [Unknown]
  - Dry mouth [Unknown]
